FAERS Safety Report 6803777-0 (Version None)
Quarter: 2010Q2

REPORT INFORMATION
  Report Type: 
  Country: None (occurrence: None)
  Receive Date: 20100628
  Receipt Date: 20100622
  Transmission Date: 20101027
  Serious: Yes (Other)
  Sender: FDA-Public Use
  Company Number: AR-AMGEN-KDC413866

PATIENT
  Sex: Female

DRUGS (7)
  1. DENOSUMAB [Suspect]
     Indication: OSTEOPOROSIS POSTMENOPAUSAL
     Route: 058
     Dates: start: 20050506, end: 20091022
  2. ALPRAZOLAM [Concomitant]
  3. ENALAPRIL MALEATE [Concomitant]
  4. BUDESONIDE [Concomitant]
  5. LEVOTHYROXINE SODIUM [Concomitant]
  6. CALCIUM CARBONATE [Concomitant]
  7. VITAMIN D [Concomitant]

REACTIONS (1)
  - SQUAMOUS CELL CARCINOMA OF SKIN [None]
